FAERS Safety Report 9396031 (Version 1)
Quarter: 2013Q3

REPORT INFORMATION
  Report Type: Spontaneous
  Country: GB (occurrence: None)
  Receive Date: 20130708
  Receipt Date: 20130708
  Transmission Date: 20140515
  Serious: Yes (Other)
  Sender: FDA-Public Use
  Company Number: AUR-APL-2013-05519

PATIENT
  Age: 81 Year
  Sex: Female
  Weight: 66.8 kg

DRUGS (5)
  1. CITALOPRAM (CITALOPRAM) [Suspect]
     Indication: PRODUCT USED FOR UNKNOWN INDICATION
  2. AMLODIPINE (AMLODIPINE) [Concomitant]
  3. FLUPENTIXOL (FLLPENTIXOL) [Concomitant]
  4. TRAZODONE (TRAZODONE) [Concomitant]
  5. ZOPICLONE (ZOPICLONE) [Concomitant]

REACTIONS (3)
  - Gait disturbance [None]
  - Feeling hot [None]
  - Dry mouth [None]
